FAERS Safety Report 6155189-3 (Version None)
Quarter: 2009Q2

REPORT INFORMATION
  Report Type: 
  Country: None (occurrence: None)
  Receive Date: 20090415
  Receipt Date: 20090403
  Transmission Date: 20091009
  Serious: Yes (Life-Threatening, Hospitalization, Other)
  Sender: FDA-Public Use
  Company Number: RU-JNJFOC-20090105833

PATIENT
  Age: 26 Year
  Sex: Male
  Weight: 81 kg

DRUGS (4)
  1. REMICADE [Suspect]
     Indication: PSORIATIC ARTHROPATHY
     Route: 042
  2. REMICADE [Suspect]
     Indication: PSORIASIS
     Route: 042
  3. PREDNISOLONE [Concomitant]
  4. ESSENTIALE [Concomitant]

REACTIONS (6)
  - ANIMAL BITE [None]
  - ASPHYXIA [None]
  - BLOOD PRESSURE DECREASED [None]
  - FLUSHING [None]
  - INFUSION RELATED REACTION [None]
  - TREMOR [None]
